FAERS Safety Report 20672490 (Version 1)
Quarter: 2022Q2

REPORT INFORMATION
  Report Type: Spontaneous
  Country: US (occurrence: US)
  Receive Date: 20220405
  Receipt Date: 20220405
  Transmission Date: 20220721
  Serious: Yes (Other)
  Sender: FDA-Public Use
  Company Number: US-GYP-001043

PATIENT
  Age: 68 Year
  Sex: Male

DRUGS (3)
  1. PREDNISONE [Suspect]
     Active Substance: PREDNISONE
     Indication: Myelitis transverse
     Route: 065
  2. PREDNISONE [Suspect]
     Active Substance: PREDNISONE
     Indication: Myelitis transverse
     Route: 065
  3. PREDNISONE [Suspect]
     Active Substance: PREDNISONE
     Indication: Myelitis transverse
     Route: 065

REACTIONS (4)
  - Condition aggravated [Unknown]
  - Myelitis transverse [Unknown]
  - Drug ineffective [Unknown]
  - Product use in unapproved indication [Unknown]
